FAERS Safety Report 5867124-3 (Version None)
Quarter: 2008Q3

REPORT INFORMATION
  Report Type: 
  Country: None (occurrence: None)
  Receive Date: 20080828
  Receipt Date: 20080828
  Transmission Date: 20090109
  Serious: Yes (Life-Threatening, Hospitalization, Other)
  Sender: FDA-Public Use
  Company Number: None

PATIENT
  Age: 63 Year
  Sex: Male
  Weight: 89.8122 kg

DRUGS (2)
  1. FLAGYL [Suspect]
     Indication: DIVERTICULITIS
     Dosage: BID PO
     Route: 048
     Dates: start: 20080817, end: 20080823
  2. COUMADIN [Concomitant]

REACTIONS (1)
  - CEREBROVASCULAR ACCIDENT [None]
